FAERS Safety Report 9993595 (Version 1)
Quarter: 2014Q1

REPORT INFORMATION
  Report Type: Spontaneous
  Country: US (occurrence: US)
  Receive Date: 20140310
  Receipt Date: 20140310
  Transmission Date: 20141002
  Serious: No
  Sender: FDA-Public Use
  Company Number: US-AMGEN-USASP2013022158

PATIENT
  Age: 58 Year
  Sex: Male

DRUGS (10)
  1. SENSIPAR [Suspect]
     Indication: HYPERPARATHYROIDISM SECONDARY
     Dosage: 60 MG, QD
     Route: 048
     Dates: start: 20130107
  2. EPOGEN [Concomitant]
  3. FOSRENOL [Concomitant]
  4. RENVELA [Concomitant]
  5. QUETIAPINE [Concomitant]
  6. METOPROLOL [Concomitant]
  7. SIMVASTATIN [Concomitant]
  8. ARIPIPRAZOLE [Concomitant]
  9. HECTOROL [Concomitant]
     Route: 042
  10. IRON [Concomitant]
     Route: 042

REACTIONS (3)
  - Blood parathyroid hormone abnormal [Unknown]
  - Blood phosphorus abnormal [Recovering/Resolving]
  - Wrong technique in drug usage process [Unknown]
